FAERS Safety Report 25722102 (Version 1)
Quarter: 2025Q3

REPORT INFORMATION
  Report Type: Spontaneous
  Country: US (occurrence: None)
  Receive Date: 20250822
  Receipt Date: 20250822
  Transmission Date: 20251021
  Serious: Yes (Hospitalization)
  Sender: FDA-CTU
  Company Number: None

PATIENT
  Sex: Female

DRUGS (2)
  1. EVEROLIMUS [Suspect]
     Active Substance: EVEROLIMUS
     Indication: Product used for unknown indication
     Dosage: FREQUENCY : DAILY;?
     Route: 048
  2. AFINITOR [Suspect]
     Active Substance: EVEROLIMUS

REACTIONS (4)
  - Diabetic ketoacidosis [None]
  - Sepsis [None]
  - Chest injury [None]
  - Carcinoid tumour pulmonary [None]
